FAERS Safety Report 22246333 (Version 1)
Quarter: 2023Q2

REPORT INFORMATION
  Report Type: Other
  Country: DE (occurrence: DE)
  Receive Date: 20230424
  Receipt Date: 20230424
  Transmission Date: 20230722
  Serious: Yes (Other)
  Sender: FDA-Public Use
  Company Number: None

PATIENT
  Age: 34 Year
  Sex: Female
  Weight: 68 kg

DRUGS (14)
  1. OMNISCAN [Suspect]
     Active Substance: GADODIAMIDE
     Indication: Magnetic resonance imaging
     Dosage: UNK UNK, SINGLE
     Route: 042
     Dates: start: 20040916, end: 20040916
  2. OMNISCAN [Suspect]
     Active Substance: GADODIAMIDE
     Indication: Diagnostic procedure
     Dosage: UNK UNK, SINGLE
     Route: 065
     Dates: start: 20070330, end: 20070330
  3. OMNISCAN [Suspect]
     Active Substance: GADODIAMIDE
     Indication: Hypoaesthesia
     Dosage: UNK UNK, SINGLE
     Route: 065
     Dates: start: 20070410, end: 20070410
  4. OMNISCAN [Suspect]
     Active Substance: GADODIAMIDE
     Indication: Hormone level abnormal
     Dosage: UNK UNK, SINGLE
     Route: 065
     Dates: start: 20090912, end: 20090912
  5. OMNISCAN [Suspect]
     Active Substance: GADODIAMIDE
     Indication: Hypothermia
     Dosage: UNK UNK, SINGLE
     Route: 065
     Dates: start: 20090923, end: 20090923
  6. OMNISCAN [Suspect]
     Active Substance: GADODIAMIDE
     Indication: Hypoaesthesia
     Dosage: UNK UNK, SINGLE
     Route: 065
     Dates: start: 20130521, end: 20130521
  7. OMNISCAN [Suspect]
     Active Substance: GADODIAMIDE
     Indication: Dysmenorrhoea
  8. MAGNEVIST [Suspect]
     Active Substance: GADOPENTETATE DIMEGLUMINE
     Indication: Diagnostic procedure
     Dosage: UNK, SINGLE
     Route: 065
     Dates: start: 20040916, end: 20040916
  9. MAGNEVIST [Suspect]
     Active Substance: GADOPENTETATE DIMEGLUMINE
     Indication: Product used for unknown indication
  10. DOTAREM [Suspect]
     Active Substance: GADOTERATE MEGLUMINE
     Indication: Magnetic resonance imaging
     Dosage: UNK UNK, SINGLE
     Route: 042
     Dates: start: 20040916, end: 20040916
  11. DOTAREM [Suspect]
     Active Substance: GADOTERATE MEGLUMINE
     Indication: Diagnostic procedure
     Dosage: UNK UNK, SINGLE
     Route: 065
     Dates: start: 20090912, end: 20090912
  12. DOTAREM [Suspect]
     Active Substance: GADOTERATE MEGLUMINE
     Indication: Dysmenorrhoea
     Dosage: UNK UNK, SINGLE
     Route: 065
     Dates: start: 20090923, end: 20090923
  13. DOTAREM [Suspect]
     Active Substance: GADOTERATE MEGLUMINE
     Indication: Hypothermia
  14. DOTAREM [Suspect]
     Active Substance: GADOTERATE MEGLUMINE
     Indication: Paraesthesia

REACTIONS (31)
  - Gadolinium deposition disease [Recovered/Resolved with Sequelae]
  - Pancreatic failure [Recovered/Resolved with Sequelae]
  - Addison^s disease [Recovered/Resolved with Sequelae]
  - Polyglandular autoimmune syndrome type II [Recovered/Resolved with Sequelae]
  - Asthma exercise induced [Recovered/Resolved with Sequelae]
  - Fibromyalgia [Recovered/Resolved with Sequelae]
  - Hypophysitis [Recovered/Resolved with Sequelae]
  - Immune system disorder [Recovered/Resolved with Sequelae]
  - Haemoglobin electrophoresis abnormal [Recovered/Resolved with Sequelae]
  - Compulsions [Recovered/Resolved with Sequelae]
  - Mental fatigue [Recovered/Resolved with Sequelae]
  - Allergy to chemicals [Recovered/Resolved with Sequelae]
  - Neurological symptom [Recovered/Resolved with Sequelae]
  - Psoriasis [Recovered/Resolved with Sequelae]
  - Dyspepsia [Recovered/Resolved with Sequelae]
  - Feeling cold [Recovered/Resolved with Sequelae]
  - Oedema peripheral [Recovered/Resolved with Sequelae]
  - Skin burning sensation [Recovered/Resolved with Sequelae]
  - Eczema [Recovered/Resolved with Sequelae]
  - Migraine [Recovered/Resolved with Sequelae]
  - Neurodermatitis [Recovered/Resolved with Sequelae]
  - Hypoaesthesia [Recovered/Resolved with Sequelae]
  - Food intolerance [Recovered/Resolved with Sequelae]
  - Hypoaesthesia [Recovered/Resolved with Sequelae]
  - Lipoma [Recovered/Resolved with Sequelae]
  - Fibroma [Recovered/Resolved with Sequelae]
  - Abdominal discomfort [Recovered/Resolved with Sequelae]
  - Visual impairment [Recovered/Resolved with Sequelae]
  - Pain [Recovered/Resolved with Sequelae]
  - Skin discomfort [Recovered/Resolved with Sequelae]
  - Paraesthesia [Recovered/Resolved with Sequelae]
